FAERS Safety Report 7005252-X (Version None)
Quarter: 2010Q3

REPORT INFORMATION
  Report Type: 
  Country: None (occurrence: None)
  Receive Date: 20100921
  Receipt Date: 20100916
  Transmission Date: 20110219
  Serious: Yes (Death)
  Sender: FDA-Public Use
  Company Number: PL-CELGENEUS-129-50794-10071135

PATIENT
  Sex: Male

DRUGS (6)
  1. VIDAZA [Suspect]
     Route: 058
     Dates: start: 20100114, end: 20100318
  2. LOSARTAN POTASSIUM [Concomitant]
     Route: 065
     Dates: start: 20100401
  3. AMLODIPINE [Concomitant]
     Route: 065
     Dates: start: 20100401
  4. FRAXIPARINE [Concomitant]
     Route: 065
     Dates: start: 20100401
  5. CEFUROXIME [Concomitant]
     Route: 065
     Dates: start: 20100401
  6. BESTPIRIN [Concomitant]
     Indication: ANTICOAGULANT THERAPY
     Route: 065
     Dates: start: 20090101

REACTIONS (2)
  - HAEMORRHAGE [None]
  - RENAL CELL CARCINOMA [None]
